FAERS Safety Report 8035844-0 (Version None)
Quarter: 2012Q1

REPORT INFORMATION
  Report Type: 
  Country: None (occurrence: None)
  Receive Date: 20120111
  Receipt Date: 20120111
  Transmission Date: 20120608
  Serious: Yes (Other)
  Sender: FDA-Public Use
  Company Number: None

PATIENT
  Age: 66 Year
  Sex: Female
  Weight: 68.038 kg

DRUGS (2)
  1. TIZANIDINE HCL [Suspect]
     Indication: PAIN
     Dosage: UNKNOWN
     Route: 048
     Dates: start: 20111201, end: 20111214
  2. TIZANIDINE HCL [Suspect]
     Indication: HYPOTONIA
     Dosage: UNKNOWN
     Route: 048
     Dates: start: 20111201, end: 20111214

REACTIONS (3)
  - PRURITUS [None]
  - TREMOR [None]
  - ANXIETY [None]
